FAERS Safety Report 7650039-8 (Version None)
Quarter: 2011Q3

REPORT INFORMATION
  Report Type: 
  Country: None (occurrence: None)
  Receive Date: 20110802
  Receipt Date: 20110802
  Transmission Date: 20111222
  Serious: Yes (Hospitalization)
  Sender: FDA-Public Use
  Company Number: None

PATIENT
  Age: 57 Year
  Sex: Female

DRUGS (11)
  1. POTASSIUM [Concomitant]
     Indication: HYPOKALAEMIA
     Dosage: 20MEQ
     Route: 048
  2. SYNTHROID [Concomitant]
     Route: 048
  3. ATENOLOL [Concomitant]
     Route: 048
  4. LASIX [Concomitant]
     Route: 048
  5. PRINIVIL [Suspect]
     Indication: HYPERTENSION
     Dosage: 20MG
     Route: 048
  6. NORVASC [Concomitant]
     Route: 048
  7. LANTUS [Concomitant]
  8. MECLIZINE [Concomitant]
  9. GLYBURIDE [Concomitant]
  10. TRAMADOL HCL [Concomitant]
     Route: 048
  11. METFORMIN HCL [Concomitant]

REACTIONS (1)
  - HYPERKALAEMIA [None]
